FAERS Safety Report 9305480 (Version 2)
Quarter: 2013Q2

REPORT INFORMATION
  Report Type: Spontaneous
  Country: CL (occurrence: CL)
  Receive Date: 20130523
  Receipt Date: 20130606
  Transmission Date: 20140414
  Serious: Yes (Other)
  Sender: FDA-Public Use
  Company Number: CL-AMGEN-CHLSP2013036223

PATIENT
  Sex: Female

DRUGS (1)
  1. PROLIA [Suspect]
     Indication: PRODUCT USED FOR UNKNOWN INDICATION
     Dosage: 50MG PER DAY

REACTIONS (5)
  - Pain [Not Recovered/Not Resolved]
  - Inflammation [Not Recovered/Not Resolved]
  - Phlebitis superficial [Not Recovered/Not Resolved]
  - Cellulitis [Not Recovered/Not Resolved]
  - Erythema [Not Recovered/Not Resolved]
